FAERS Safety Report 9788360 (Version 1)
Quarter: 2013Q4

REPORT INFORMATION
  Report Type: Spontaneous
  Country: FR (occurrence: FR)
  Receive Date: 20131230
  Receipt Date: 20131230
  Transmission Date: 20140711
  Serious: Yes (Hospitalization)
  Sender: FDA-Public Use
  Company Number: FR-ABBVIE-13P-056-1184099-00

PATIENT
  Age: 44 Year
  Sex: Male

DRUGS (2)
  1. DEPAKOTE [Suspect]
     Indication: BIPOLAR DISORDER
     Route: 048
     Dates: start: 201303, end: 20130314
  2. ANAFRANIL [Suspect]
     Indication: DEPRESSION
     Route: 048
     Dates: start: 201303, end: 20130314

REACTIONS (4)
  - Hepatocellular injury [Recovered/Resolved]
  - Abdominal pain [Unknown]
  - Gallbladder disorder [Unknown]
  - Transaminases increased [Unknown]
